FAERS Safety Report 5376999-6 (Version None)
Quarter: 2007Q2

REPORT INFORMATION
  Report Type: 
  Country: None (occurrence: None)
  Receive Date: 20070628
  Receipt Date: 20070628
  Transmission Date: 20071010
  Serious: Yes (Hospitalization)
  Sender: FDA-Public Use
  Company Number: None

PATIENT
  Age: 62 Year
  Sex: Female
  Weight: 80.9 kg

DRUGS (6)
  1. OMNIPAQUE CONTRAST UNKNOWN STRENGTH UNKNOWN MANUFACTURER [Suspect]
     Indication: STENT PLACEMENT
     Dosage: UNKNOWN DOSE  UNKNOWN  INTRACORNA
     Route: 022
  2. VALIUM [Concomitant]
  3. VERSED(R) [Concomitant]
  4. FENTANYL(R) [Concomitant]
  5. LOPRESSOR(R) [Concomitant]
  6. INTEGRILIN(R) [Concomitant]

REACTIONS (3)
  - CONTRAST MEDIA ALLERGY [None]
  - HYPERSENSITIVITY [None]
  - OXYGEN SATURATION DECREASED [None]
